FAERS Safety Report 19792444 (Version 1)
Quarter: 2021Q3

REPORT INFORMATION
  Report Type: Spontaneous
  Country: US (occurrence: US)
  Receive Date: 20210906
  Receipt Date: 20210906
  Transmission Date: 20211014
  Serious: No
  Sender: FDA-Public Use
  Company Number: US-ORGANON-O2108USA002048

PATIENT
  Age: 60 Year
  Sex: Female

DRUGS (1)
  1. REMERON [Suspect]
     Active Substance: MIRTAZAPINE
     Indication: SKIN ABRASION
     Dosage: 15 MILLIGRAM, HS (15 MG DAILY AT NIGHT )
     Route: 048

REACTIONS (1)
  - Product use in unapproved indication [Unknown]
